FAERS Safety Report 10178812 (Version 1)
Quarter: 2014Q2

REPORT INFORMATION
  Report Type: Spontaneous
  Country: DE (occurrence: DE)
  Receive Date: 20140519
  Receipt Date: 20140519
  Transmission Date: 20141212
  Serious: Yes (Death)
  Sender: FDA-Public Use
  Company Number: DE-OTSUKA-US-2014-11000

PATIENT
  Sex: 0

DRUGS (5)
  1. BUSULFEX [Suspect]
     Indication: STEM CELL TRANSPLANT
     Dosage: 11.2 ? 12.8 MG/KG
     Route: 041
  2. BUSULFEX [Suspect]
     Dosage: 6.4 ? 8.0 MG/KG
     Route: 041
  3. CYCLOPHOSPHAMIDE [Suspect]
     Indication: STEM CELL TRANSPLANT
     Dosage: 2 X 60 MG/KG/BW
     Route: 041
  4. FLUDARABINE [Suspect]
     Indication: STEM CELL TRANSPLANT
     Dosage: 90 ? 120 MG/M^2
     Route: 041
  5. TREOSULFAN [Suspect]
     Indication: STEM CELL TRANSPLANT
     Dosage: 30G/M^2 IV
     Route: 041

REACTIONS (1)
  - Toxicity to various agents [Fatal]
